FAERS Safety Report 13961650 (Version 2)
Quarter: 2017Q4

REPORT INFORMATION
  Report Type: Spontaneous
  Country: JP (occurrence: JP)
  Receive Date: 20170912
  Receipt Date: 20171016
  Transmission Date: 20180320
  Serious: Yes (Other)
  Sender: FDA-Public Use
  Company Number: PHJP2017JP027828

PATIENT
  Age: 79 Year
  Sex: Male

DRUGS (2)
  1. ZOMETA [Suspect]
     Active Substance: ZOLEDRONIC ACID
     Indication: METASTASES TO BONE
     Dosage: UNK
     Route: 041
     Dates: start: 201003, end: 201405
  2. ZOMETA [Suspect]
     Active Substance: ZOLEDRONIC ACID
     Indication: PROSTATE CANCER

REACTIONS (6)
  - Gingival ulceration [Unknown]
  - Actinomycosis [Unknown]
  - Purulence [Recovering/Resolving]
  - Osteomyelitis bacterial [Recovering/Resolving]
  - Osteonecrosis of jaw [Recovering/Resolving]
  - Gingival swelling [Unknown]

NARRATIVE: CASE EVENT DATE: 201403
